FAERS Safety Report 14985241 (Version 2)
Quarter: 2018Q3

REPORT INFORMATION
  Report Type: Report from Study
  Country: None (occurrence: AU)
  Receive Date: 20180607
  Receipt Date: 20180710
  Transmission Date: 20181010
  Serious: Yes (Hospitalization)
  Sender: FDA-Public Use
  Company Number: AU-ABBVIE-18K-008-2378924-00

PATIENT
  Age: 76 Year
  Sex: Female

DRUGS (1)
  1. DUODOPA [Suspect]
     Active Substance: CARBIDOPA\LEVODOPA
     Indication: PARKINSON^S DISEASE
     Dosage: 100ML GEL CASSETTE
     Route: 050
     Dates: start: 20161128

REACTIONS (2)
  - Fall [Unknown]
  - Hip fracture [Unknown]

NARRATIVE: CASE EVENT DATE: 201805
